FAERS Safety Report 10097217 (Version 4)
Quarter: 2014Q3

REPORT INFORMATION
  Report Type: Spontaneous
  Country: BR (occurrence: BR)
  Receive Date: 20140422
  Receipt Date: 20140721
  Transmission Date: 20150326
  Serious: Yes (Death, Hospitalization)
  Sender: FDA-Public Use
  Company Number: BR-ABBVIE-14P-020-1227655-00

PATIENT
  Age: 42 Year
  Sex: Female

DRUGS (5)
  1. UNKNOWN CORTICOID [Concomitant]
     Active Substance: UNSPECIFIED INGREDIENT
     Indication: PRODUCT USED FOR UNKNOWN INDICATION
     Dosage: LOW DOSES
  2. CHLOROQUINE [Concomitant]
     Active Substance: CHLOROQUINE\CHLOROQUINE PHOSPHATE
     Indication: PRODUCT USED FOR UNKNOWN INDICATION
  3. UNKNOWN ANTIINFLAMMATORY [Concomitant]
     Indication: PRODUCT USED FOR UNKNOWN INDICATION
     Dosage: LOW DOSES
  4. FOLIC ACID. [Concomitant]
     Active Substance: FOLIC ACID
     Indication: PRODUCT USED FOR UNKNOWN INDICATION
  5. HUMIRA [Suspect]
     Active Substance: ADALIMUMAB
     Indication: RHEUMATOID ARTHRITIS

REACTIONS (14)
  - Septic shock [Fatal]
  - Rheumatoid arthritis [Unknown]
  - Pneumonia [Fatal]
  - Infection [Fatal]
  - Pyrexia [Unknown]
  - Infection [Recovered/Resolved]
  - Malaise [Unknown]
  - Sepsis [Fatal]
  - Arthralgia [Unknown]
  - Pneumonia [Recovered/Resolved]
  - Cardio-respiratory arrest [Fatal]
  - Arthritis [Unknown]
  - Respiratory failure [Unknown]
  - Lung infection [Fatal]
